FAERS Safety Report 9247673 (Version 1)
Quarter: 2013Q1

REPORT INFORMATION
  Report Type: Spontaneous
  Country: US (occurrence: None)
  Receive Date: 20121130
  Receipt Date: 20121130
  Transmission Date: 20140127
  Serious: Yes (Hospitalization)
  Sender: FDA-Public Use
  Company Number: 360877

PATIENT
  Age: 37 Year
  Sex: Male
  Weight: 59 kg

DRUGS (2)
  1. NOVOLOG MIX 70/30 [Suspect]
     Dosage: 130 IU, UNK, SUBCUTANEOUS
     Route: 058
     Dates: start: 2011
  2. LANTUS (INSULIN GLARGINE) [Concomitant]

REACTIONS (1)
  - Diabetic ketoacidosis [None]
